FAERS Safety Report 22163848 (Version 1)
Quarter: 2023Q2

REPORT INFORMATION
  Report Type: Spontaneous
  Country: PT (occurrence: PT)
  Receive Date: 20230401
  Receipt Date: 20230401
  Transmission Date: 20230721
  Serious: Yes (Other)
  Sender: FDA-Public Use
  Company Number: PT-TEVA-2023-PT-2870552

PATIENT
  Age: 75 Year
  Sex: Female

DRUGS (3)
  1. CLOPIDOGREL [Suspect]
     Active Substance: CLOPIDOGREL BISULFATE
     Indication: Product used for unknown indication
     Route: 048
  2. LETTER [Concomitant]
     Indication: Product used for unknown indication
     Dosage: 0.1 MG
     Route: 048
  3. VALIUM [Concomitant]
     Active Substance: DIAZEPAM
     Indication: Muscle spasms
     Dosage: HALF OF A TABLET
     Route: 048

REACTIONS (3)
  - Blood pressure increased [Recovered/Resolved]
  - Swelling [Recovered/Resolved]
  - Malaise [Recovered/Resolved]
